FAERS Safety Report 4792520-5 (Version None)
Quarter: 2005Q4

REPORT INFORMATION
  Report Type: 
  Country: None (occurrence: None)
  Receive Date: 20051010
  Receipt Date: 20050928
  Transmission Date: 20060501
  Serious: Yes (Life-Threatening, Hospitalization, Other)
  Sender: FDA-Public Use
  Company Number: HK-BRISTOL-MYERS SQUIBB COMPANY-13135926

PATIENT
  Age: 44 Year
  Sex: Male

DRUGS (4)
  1. ERBITUX [Suspect]
     Indication: COLON CANCER METASTATIC
     Route: 042
     Dates: start: 20050831
  2. XELODA [Suspect]
     Indication: COLON CANCER METASTATIC
     Dates: start: 20050831, end: 20050909
  3. HEXETIDINE [Concomitant]
     Dates: start: 20050907
  4. VITAMIN B6 [Concomitant]
     Dates: start: 20050907

REACTIONS (11)
  - ABDOMINAL MASS [None]
  - ACNE [None]
  - HAEMATURIA [None]
  - IMPLANT SITE DISCHARGE [None]
  - ORGAN FAILURE [None]
  - PELVIC MASS [None]
  - RENAL FAILURE ACUTE [None]
  - SEPSIS [None]
  - SEPTIC SHOCK [None]
  - STREPTOCOCCAL INFECTION [None]
  - URINARY TRACT INFECTION [None]
